FAERS Safety Report 5674308-6 (Version None)
Quarter: 2008Q1

REPORT INFORMATION
  Report Type: 
  Country: None (occurrence: None)
  Receive Date: 20080320
  Receipt Date: 20080320
  Transmission Date: 20080703
  Serious: Yes (Death)
  Sender: FDA-Public Use
  Company Number: None

PATIENT
  Age: 75 Year
  Sex: Male
  Weight: 92 kg

DRUGS (1)
  1. HEPARIN [Suspect]
     Indication: CAROTID ENDARTERECTOMY
     Dosage: 5,000 UNITS ONCE IV BOLUS
     Route: 040

REACTIONS (5)
  - AORTIC STENOSIS [None]
  - APNOEIC ATTACK [None]
  - CARDIAC FAILURE [None]
  - COUGH [None]
  - HYPOTENSION [None]
